FAERS Safety Report 9633200 (Version 1)
Quarter: 2013Q4

REPORT INFORMATION
  Report Type: Spontaneous
  Country: US (occurrence: None)
  Receive Date: 20131018
  Receipt Date: 20131018
  Transmission Date: 20140711
  Serious: Yes (Hospitalization)
  Sender: FDA-Public Use
  Company Number: None

PATIENT
  Age: 77 Year
  Sex: Female
  Weight: 75.75 kg

DRUGS (2)
  1. ADVIL [Suspect]
     Indication: PAIN IN EXTREMITY
     Dates: start: 20131009
  2. ALEVE [Suspect]
     Indication: PAIN IN EXTREMITY
     Dates: start: 20131009

REACTIONS (1)
  - Lower gastrointestinal haemorrhage [None]
